FAERS Safety Report 13513766 (Version 3)
Quarter: 2017Q3

REPORT INFORMATION
  Report Type: Spontaneous
  Country: BG (occurrence: BG)
  Receive Date: 20170504
  Receipt Date: 20170808
  Transmission Date: 20171127
  Serious: Yes (Other)
  Sender: FDA-Public Use
  Company Number: BG-AMGEN-BGRSP2017064961

PATIENT
  Age: 51 Year
  Sex: Female
  Weight: 40 kg

DRUGS (12)
  1. IRINOTECAN [Suspect]
     Active Substance: IRINOTECAN
     Indication: COLORECTAL CANCER METASTATIC
     Dosage: UNK, CYCLICAL
     Route: 065
     Dates: start: 201701, end: 201707
  2. BEVACIZUMAB. [Suspect]
     Active Substance: BEVACIZUMAB
     Indication: COLORECTAL CANCER METASTATIC
     Dosage: UNK, CYCLICAL
     Route: 065
     Dates: start: 201701, end: 201707
  3. 5 FU [Suspect]
     Active Substance: FLUOROURACIL
     Dosage: UNK, CYCLICAL
     Route: 065
     Dates: start: 201610
  4. VECTIBIX [Suspect]
     Active Substance: PANITUMUMAB
     Dosage: 260 MG, Q2WK
     Route: 042
     Dates: start: 201610, end: 20170117
  5. VECTIBIX [Suspect]
     Active Substance: PANITUMUMAB
     Indication: COLORECTAL CANCER METASTATIC
     Dosage: 260 MG, Q2WK
     Route: 042
     Dates: start: 20160428, end: 201608
  6. FOLINIC ACID [Suspect]
     Active Substance: LEUCOVORIN
     Dosage: UNK, CYCLICAL
     Route: 065
     Dates: start: 201610
  7. FOLINIC ACID [Suspect]
     Active Substance: LEUCOVORIN
     Dosage: UNK, CYCLICAL
     Route: 065
     Dates: start: 201701, end: 201707
  8. 5 FU [Suspect]
     Active Substance: FLUOROURACIL
     Dosage: UNK, CYCLICAL
     Route: 065
     Dates: start: 201701, end: 201707
  9. FOLINIC ACID [Suspect]
     Active Substance: LEUCOVORIN
     Indication: COLORECTAL CANCER METASTATIC
     Dosage: UNK, CYCLICAL
     Route: 065
     Dates: start: 201604, end: 201608
  10. 5 FU [Suspect]
     Active Substance: FLUOROURACIL
     Indication: COLORECTAL CANCER METASTATIC
     Dosage: UNK, CYCLICAL
     Route: 065
     Dates: start: 201604, end: 201608
  11. OXALIPLATIN. [Concomitant]
     Active Substance: OXALIPLATIN
     Indication: COLORECTAL CANCER METASTATIC
     Dosage: UNK, CYCLICAL
     Route: 065
     Dates: start: 201604, end: 201608
  12. OXALIPLATIN. [Concomitant]
     Active Substance: OXALIPLATIN
     Dosage: UNK, CYCLICAL
     Route: 065
     Dates: start: 201610

REACTIONS (9)
  - Ascites [Unknown]
  - Thrombocytopenia [Recovered/Resolved]
  - Rash pustular [Recovered/Resolved]
  - Peripheral sensory neuropathy [Recovered/Resolved]
  - Anaemia [Recovered/Resolved]
  - Keratitis [Recovered/Resolved]
  - Drug effect incomplete [Unknown]
  - Hirsutism [Recovered/Resolved]
  - Colorectal cancer metastatic [Unknown]

NARRATIVE: CASE EVENT DATE: 201604
